FAERS Safety Report 20868363 (Version 7)
Quarter: 2024Q1

REPORT INFORMATION
  Report Type: Report from Study
  Country: KZ (occurrence: KZ)
  Receive Date: 20220524
  Receipt Date: 20240227
  Transmission Date: 20240409
  Serious: Yes (Death, Hospitalization, Other)
  Sender: FDA-Public Use
  Company Number: KZ-NOVARTISPH-NVSC2022KZ083528

PATIENT
  Age: 0 Year
  Sex: Female
  Weight: 6.6 kg

DRUGS (11)
  1. ZOLGENSMA [Suspect]
     Active Substance: ONASEMNOGENE ABEPARVOVEC-XIOI
     Indication: Spinal muscular atrophy
     Dosage: 33 ML, ONCE/SINGLE
     Route: 042
     Dates: start: 20220328
  2. PREDNISOLONE [Concomitant]
     Active Substance: PREDNISOLONE
     Indication: Product used for unknown indication
     Dosage: 1 MG/KG, QD
     Route: 065
     Dates: start: 20220327
  3. PREDNISOLONE [Concomitant]
     Active Substance: PREDNISOLONE
     Dosage: 1 MILLIGRAM PER MILLILITRE
     Route: 065
     Dates: start: 20220327
  4. PREDNISOLONE [Concomitant]
     Active Substance: PREDNISOLONE
     Dosage: 2 MG/KG
     Route: 065
     Dates: start: 20220404, end: 20220413
  5. DEXTROSE [Concomitant]
     Active Substance: DEXTROSE\DEXTROSE MONOHYDRATE
     Indication: Product used for unknown indication
     Dosage: UNK (100)
     Route: 042
     Dates: start: 20220515, end: 20220515
  6. METIPRED [Concomitant]
     Active Substance: METHYLPREDNISOLONE
     Indication: Product used for unknown indication
     Dosage: 120 MG, QD
     Route: 041
     Dates: start: 20220515
  7. VITAMIN C [Concomitant]
     Active Substance: ASCORBIC ACID
     Indication: Product used for unknown indication
     Dosage: 0.5 ML, BID
     Route: 041
     Dates: start: 20220515
  8. ACTIVATED CHARCOAL [Concomitant]
     Active Substance: ACTIVATED CHARCOAL
     Indication: Product used for unknown indication
     Dosage: 3 TIMES A DAY IN PROBE
     Route: 065
     Dates: start: 20220515
  9. AMRI K [Concomitant]
     Indication: Product used for unknown indication
     Dosage: 0.5 ML, QD
     Route: 065
     Dates: start: 20220515
  10. ETHAMSYLATE [Concomitant]
     Active Substance: ETHAMSYLATE
     Indication: Product used for unknown indication
     Dosage: 1 ML, BID
     Route: 042
     Dates: start: 20220515
  11. CEFUROXIME [Concomitant]
     Active Substance: CEFUROXIME
     Indication: Product used for unknown indication
     Dosage: 300 MG, BID
     Route: 042
     Dates: start: 20220515

REACTIONS (23)
  - Toxic encephalopathy [Fatal]
  - Respiratory arrest [Fatal]
  - Cardiac arrest [Fatal]
  - Mental status changes [Fatal]
  - Somnolence [Fatal]
  - Hepatotoxicity [Fatal]
  - Pyrexia [Fatal]
  - Vomiting [Fatal]
  - Thrombocytopenia [Fatal]
  - Alanine aminotransferase increased [Fatal]
  - Aspartate aminotransferase increased [Fatal]
  - Jaundice [Fatal]
  - Blood bilirubin increased [Fatal]
  - Bilirubin conjugated increased [Fatal]
  - Hepatic fibrosis [Fatal]
  - Acute hepatic failure [Fatal]
  - Haemorrhagic disorder [Unknown]
  - Nephrotic syndrome [Unknown]
  - Brain oedema [Unknown]
  - Atelectasis [Unknown]
  - Irritability [Unknown]
  - Crying [Unknown]
  - Ill-defined disorder [Unknown]

NARRATIVE: CASE EVENT DATE: 20220329
